FAERS Safety Report 5541869-7 (Version None)
Quarter: 2007Q4

REPORT INFORMATION
  Report Type: 
  Country: None (occurrence: None)
  Receive Date: 20071210
  Receipt Date: 20071203
  Transmission Date: 20080405
  Serious: Yes (Disabling)
  Sender: FDA-Public Use
  Company Number: GB-ROCHE-535354

PATIENT
  Age: 28 Year
  Sex: Female

DRUGS (1)
  1. ROACCUTANE [Suspect]
     Indication: ACNE
     Route: 048
     Dates: start: 19980311, end: 19990101

REACTIONS (2)
  - IMPAIRED WORK ABILITY [None]
  - OBSESSIVE-COMPULSIVE DISORDER [None]
